FAERS Safety Report 18699668 (Version 1)
Quarter: 2021Q1

REPORT INFORMATION
  Report Type: Spontaneous
  Country: JP (occurrence: JP)
  Receive Date: 20210104
  Receipt Date: 20210104
  Transmission Date: 20210419
  Serious: Yes (Hospitalization, Other)
  Sender: FDA-Public Use
  Company Number: JP-TAKEDA-2020TUS061377

PATIENT
  Age: 66 Year
  Sex: Female

DRUGS (8)
  1. KALISERUM [Concomitant]
     Dosage: UNK
  2. PITAVASTATIN. [Concomitant]
     Active Substance: PITAVASTATIN CALCIUM
     Dosage: UNK
  3. ATELEC [Concomitant]
     Active Substance: CILNIDIPINE
     Dosage: UNK
  4. RABEPRAZOLE [Concomitant]
     Active Substance: RABEPRAZOLE
     Dosage: UNK
  5. 405 (LANTHANUM CARBONATE) [Suspect]
     Active Substance: LANTHANUM CARBONATE
     Indication: PRODUCT USED FOR UNKNOWN INDICATION
     Dosage: 2000 MILLIGRAM, QD
     Route: 065
     Dates: start: 20170401, end: 20201119
  6. AZOSEMIDE [Concomitant]
     Active Substance: AZOSEMIDE
     Dosage: UNK
  7. ALFACALCIDOL [Concomitant]
     Active Substance: ALFACALCIDOL
     Dosage: UNK
  8. KIKLIN [Concomitant]
     Active Substance: BIXALOMER
     Dosage: UNK

REACTIONS (2)
  - Peritonitis [Recovering/Resolving]
  - Constipation [Unknown]

NARRATIVE: CASE EVENT DATE: 201704
